FAERS Safety Report 4728706-5 (Version None)
Quarter: 2005Q3

REPORT INFORMATION
  Report Type: 
  Country: None (occurrence: None)
  Receive Date: 20050721
  Receipt Date: 20050503
  Transmission Date: 20060218
  Serious: No
  Sender: FDA-Public Use
  Company Number: 2005SP000537

PATIENT
  Age: 52 Year
  Sex: Female
  Weight: 65.7716 kg

DRUGS (1)
  1. LUNESTA [Suspect]
     Dosage: 1 MG; 1X; ORAL
     Route: 048
     Dates: start: 20050502, end: 20050502

REACTIONS (7)
  - ARTHRALGIA [None]
  - DIZZINESS [None]
  - DRUG INEFFECTIVE [None]
  - DRY MOUTH [None]
  - FLATULENCE [None]
  - INSOMNIA [None]
  - NAUSEA [None]
